FAERS Safety Report 9170365 (Version 1)
Quarter: 2013Q1

REPORT INFORMATION
  Report Type: Spontaneous
  Country: US (occurrence: US)
  Receive Date: 20130319
  Receipt Date: 20130319
  Transmission Date: 20140127
  Serious: Yes (Hospitalization)
  Sender: FDA-Public Use
  Company Number: US-BAYER-2013-031307

PATIENT
  Age: 23 Year
  Sex: Female
  Weight: 72.56 kg

DRUGS (9)
  1. YAZ [Suspect]
     Indication: ACNE
     Dosage: UNK
     Dates: start: 200806, end: 200808
  2. YAZ [Suspect]
     Indication: PREMENSTRUAL SYNDROME
  3. ALDOSTERONE ANTAGONISTS [Concomitant]
  4. PROCTOFOAM HC [Concomitant]
  5. DOXYCYCLINE [DOXYCYCLINE] [Concomitant]
     Dosage: UNK
     Dates: start: 20080831
  6. MULTIVITAMIN [Concomitant]
     Dosage: UNK
     Dates: start: 20080831
  7. NAPROSYN [Concomitant]
  8. MUSCLE RELAXANTS [Concomitant]
  9. NSAID^S [Concomitant]

REACTIONS (10)
  - Pulmonary embolism [None]
  - Back pain [None]
  - Chest pain [None]
  - Pleuritic pain [None]
  - Dizziness [None]
  - Dyspnoea [None]
  - Hypotension [None]
  - Tachycardia [None]
  - Tachypnoea [None]
  - Suffocation feeling [None]
